FAERS Safety Report 6884902-2 (Version None)
Quarter: 2010Q3

REPORT INFORMATION
  Report Type: 
  Country: None (occurrence: None)
  Receive Date: 20100729
  Receipt Date: 20071006
  Transmission Date: 20110219
  Serious: Yes (Other)
  Sender: FDA-Public Use
  Company Number: US-PFIZER INC-2007083209

PATIENT
  Sex: Male
  Weight: 91 kg

DRUGS (4)
  1. CELEBREX [Suspect]
     Indication: MUSCLE STRAIN
     Dates: start: 20071005
  2. SYNTHROID [Concomitant]
  3. VICODIN [Concomitant]
  4. GLUCOSAMINE [Concomitant]
     Indication: MUSCLE STRAIN

REACTIONS (1)
  - SYNCOPE [None]
